FAERS Safety Report 22093673 (Version 1)
Quarter: 2023Q1

REPORT INFORMATION
  Report Type: Spontaneous
  Country: US (occurrence: None)
  Receive Date: 20230313
  Receipt Date: 20230313
  Transmission Date: 20230418
  Serious: Yes (Disabling)
  Sender: FDA-Public Use
  Company Number: None

PATIENT
  Age: 70 Year
  Sex: Female
  Weight: 88.65 kg

DRUGS (1)
  1. SECRET DRY LAVENDER [Suspect]
     Active Substance: ALUMINUM CHLOROHYDRATE
     Indication: Personal hygiene
     Route: 061

REACTIONS (3)
  - Burning sensation [None]
  - Pain [None]
  - Pigmentation disorder [None]
